FAERS Safety Report 10956727 (Version 1)
Quarter: 2015Q1

REPORT INFORMATION
  Report Type: Spontaneous
  Country: TR (occurrence: TR)
  Receive Date: 20150326
  Receipt Date: 20150326
  Transmission Date: 20150721
  Serious: Yes (Other)
  Sender: FDA-Public Use
  Company Number: TR-ROCHE-1548181

PATIENT
  Age: 62 Year
  Sex: Female

DRUGS (2)
  1. LUCENTIS [Suspect]
     Active Substance: RANIBIZUMAB
     Indication: VISUAL IMPAIRMENT
     Dosage: IN BOTH EYES
     Route: 050
     Dates: start: 20141114
  2. LUCENTIS [Suspect]
     Active Substance: RANIBIZUMAB
     Indication: DIABETIC RETINAL OEDEMA
     Dosage: IN BOTH EYES
     Route: 050
     Dates: start: 20150115, end: 20150115

REACTIONS (5)
  - Uveitis [Recovering/Resolving]
  - Anterior chamber inflammation [Unknown]
  - Visual acuity reduced [Unknown]
  - Vitritis [Unknown]
  - Blindness [Unknown]
